FAERS Safety Report 8684411 (Version 5)
Quarter: 2012Q4

REPORT INFORMATION
  Report Type: Report from Study
  Country: US (occurrence: None)
  Receive Date: 20120710
  Receipt Date: 20120913
  Transmission Date: 20130627
  Serious: Yes (Hospitalization)
  Sender: FDA-Public Use
  Company Number: 2010003567

PATIENT
  Age: 81 Year
  Sex: Female

DRUGS (2)
  1. TARCEVA [Suspect]
     Indication: PANCREATIC CARCINOMA
     Dosage: UID/QD
     Route: 048
     Dates: start: 20100818, end: 20120619
  2. TARCEVA [Suspect]
     Indication: PANCREATIC CARCINOMA
     Dosage: UID/QD
     Route: 048
     Dates: start: 20120704

REACTIONS (8)
  - Superior vena caval stenosis [None]
  - Vascular stenosis [None]
  - Rash [None]
  - Nausea [None]
  - Vomiting [None]
  - Thrombosis [None]
  - Staphylococcal infection [None]
  - Thrombosis [None]
